FAERS Safety Report 6377837-5 (Version None)
Quarter: 2009Q3

REPORT INFORMATION
  Report Type: 
  Country: None (occurrence: None)
  Receive Date: 20090925
  Receipt Date: 20090924
  Transmission Date: 20100115
  Serious: No
  Sender: FDA-Public Use
  Company Number: US-ROXANE LABORATORIES, INC.-2009-RO-00994RO

PATIENT
  Sex: Male

DRUGS (4)
  1. PREDNISONE TAB [Suspect]
     Indication: SCIATICA
  2. GLYBURIDE [Suspect]
  3. ACTOS [Suspect]
  4. JANUVIA [Suspect]

REACTIONS (1)
  - BLOOD GLUCOSE INCREASED [None]
